FAERS Safety Report 7585641-5 (Version None)
Quarter: 2011Q2

REPORT INFORMATION
  Report Type: 
  Country: None (occurrence: None)
  Receive Date: 20110624
  Receipt Date: 20110609
  Transmission Date: 20111010
  Serious: Yes (Death, Life-Threatening, Hospitalization)
  Sender: FDA-Public Use
  Company Number: 2011MA006980

PATIENT
  Age: 61 Year
  Sex: Female

DRUGS (2)
  1. AMITRIPTYLINE HCL [Concomitant]
  2. CARBAMAZEPINE [Suspect]
     Indication: POST HERPETIC NEURALGIA
     Dosage: 300 MG, QD,

REACTIONS (8)
  - MYALGIA [None]
  - RESPIRATORY DISORDER [None]
  - STEVENS-JOHNSON SYNDROME [None]
  - ARTHRALGIA [None]
  - MULTI-ORGAN FAILURE [None]
  - TOXIC EPIDERMAL NECROLYSIS [None]
  - SEPTIC SHOCK [None]
  - CARDIOVASCULAR DISORDER [None]
